FAERS Safety Report 23518862 (Version 2)
Quarter: 2024Q3

REPORT INFORMATION
  Report Type: Spontaneous
  Country: US (occurrence: US)
  Receive Date: 20240213
  Receipt Date: 20240826
  Transmission Date: 20241017
  Serious: Yes (Hospitalization)
  Sender: KINIKSA PHARMACEUTICALS
  Company Number: US-Kiniksa Pharmaceuticals Ltd.-2023KPU000492

PATIENT
  Age: 93 Year
  Sex: Female

DRUGS (1)
  1. ARCALYST [Suspect]
     Active Substance: RILONACEPT
     Indication: Pericardial disease
     Route: 058
     Dates: start: 202304, end: 2023

REACTIONS (6)
  - Fall [Unknown]
  - COVID-19 [Unknown]
  - Pruritus [Unknown]
  - Pruritus [Unknown]
  - Pain [Unknown]
  - Pain in extremity [Unknown]

NARRATIVE: CASE EVENT DATE: 20230101
